FAERS Safety Report 4322140-8 (Version None)
Quarter: 2004Q1

REPORT INFORMATION
  Report Type: 
  Country: None (occurrence: None)
  Receive Date: 20040323
  Receipt Date: 20040316
  Transmission Date: 20041129
  Serious: Yes (Hospitalization)
  Sender: FDA-Public Use
  Company Number: PHRM2004FR01250

PATIENT
  Sex: Female

DRUGS (4)
  1. TRILEPTAL [Suspect]
     Indication: EPILEPSY
     Dosage: 600 MG, TID
     Route: 048
     Dates: start: 20040205, end: 20040213
  2. TRILEPTAL [Suspect]
     Dosage: 1.2 G DAILY
     Route: 048
     Dates: start: 20040213
  3. MOPRAL [Suspect]
     Dosage: 20 MG, QD
     Route: 048
     Dates: start: 20040203, end: 20040209
  4. LASIX [Concomitant]
     Dosage: UNK, UNK
     Route: 048

REACTIONS (5)
  - BRONCHIAL INFECTION [None]
  - FALL [None]
  - HYPONATRAEMIA [None]
  - RESPIRATORY TRACT INFECTION [None]
  - SOMNOLENCE [None]
